FAERS Safety Report 20850300 (Version 1)
Quarter: 2022Q2

REPORT INFORMATION
  Report Type: Spontaneous
  Country: US (occurrence: US)
  Receive Date: 20220519
  Receipt Date: 20220519
  Transmission Date: 20220721
  Serious: No
  Sender: FDA-Public Use
  Company Number: US-KALA PHARAMACEUTICALS-2022KLA00015

PATIENT
  Age: 71 Year
  Sex: Female
  Weight: 64.853 kg

DRUGS (1)
  1. EYSUVIS [Suspect]
     Active Substance: LOTEPREDNOL ETABONATE
     Indication: Dry eye
     Dosage: 1 DROP, 4X/DAY IN BOTH EYES
     Route: 047
     Dates: start: 20220221

REACTIONS (1)
  - Eye irritation [Not Recovered/Not Resolved]

NARRATIVE: CASE EVENT DATE: 20220221
